FAERS Safety Report 26106920 (Version 1)
Quarter: 2025Q4

REPORT INFORMATION
  Report Type: Spontaneous
  Country: EU (occurrence: EU)
  Receive Date: 20251201
  Receipt Date: 20251201
  Transmission Date: 20260118
  Serious: Yes (Other)
  Sender: CHEPLAPHARM
  Company Number: EU-CHEPLA-2025013409

PATIENT
  Age: 38 Year
  Sex: Female

DRUGS (14)
  1. OLANZAPINE [Suspect]
     Active Substance: OLANZAPINE
     Indication: Depression
     Route: 048
  2. OLANZAPINE [Suspect]
     Active Substance: OLANZAPINE
     Indication: Acute psychosis
     Route: 048
  3. SERTRALINE [Suspect]
     Active Substance: SERTRALINE HYDROCHLORIDE
     Indication: Acute psychosis
     Route: 048
  4. SERTRALINE [Suspect]
     Active Substance: SERTRALINE HYDROCHLORIDE
     Indication: Depression
     Route: 048
  5. SERTRALINE [Suspect]
     Active Substance: SERTRALINE HYDROCHLORIDE
     Indication: Acute psychosis
  6. SERTRALINE [Suspect]
     Active Substance: SERTRALINE HYDROCHLORIDE
     Indication: Depression
  7. HALOPERIDOL [Suspect]
     Active Substance: HALOPERIDOL
     Indication: Acute psychosis
     Dosage: 10 MG/2 ML/P
  8. HALOPERIDOL [Suspect]
     Active Substance: HALOPERIDOL
     Indication: Depression
     Dosage: 10 MG/2 ML/P
  9. HALOPERIDOL [Suspect]
     Active Substance: HALOPERIDOL
     Indication: Acute psychosis
     Dosage: 15 MG/3 ML
  10. HALOPERIDOL [Suspect]
     Active Substance: HALOPERIDOL
     Indication: Depression
     Dosage: 15 MG/3 ML
  11. DIAZEPAM [Suspect]
     Active Substance: DIAZEPAM
     Indication: Depression
     Dosage: 10 MG/2 ML/P
  12. DIAZEPAM [Suspect]
     Active Substance: DIAZEPAM
     Indication: Acute psychosis
     Dosage: 10 MG/2 ML/P
  13. DIAZEPAM [Suspect]
     Active Substance: DIAZEPAM
     Indication: Depression
     Dosage: 30 MG/6 ML
  14. DIAZEPAM [Suspect]
     Active Substance: DIAZEPAM
     Indication: Acute psychosis
     Dosage: 30 MG/6 ML

REACTIONS (3)
  - Acute psychosis [Recovering/Resolving]
  - Condition aggravated [Recovering/Resolving]
  - Refusal of treatment by patient [Unknown]
